FAERS Safety Report 5036188-1 (Version None)
Quarter: 2006Q2

REPORT INFORMATION
  Report Type: 
  Country: None (occurrence: None)
  Receive Date: 20060531
  Receipt Date: 20050916
  Transmission Date: 20061013
  Serious: Yes (Other)
  Sender: FDA-Public Use
  Company Number: 2005087779

PATIENT
  Age: 64 Year
  Sex: Female
  Weight: 63.5036 kg

DRUGS (1)
  1. COLESTIPOL HCL [Suspect]
     Indication: IRRITABLE BOWEL SYNDROME
     Dosage: (1 GRAM), ORAL
     Route: 048

REACTIONS (2)
  - FIBROMYALGIA [None]
  - RESTLESS LEGS SYNDROME [None]
